FAERS Safety Report 16271048 (Version 1)
Quarter: 2019Q2

REPORT INFORMATION
  Report Type: Spontaneous
  Country: BE (occurrence: BE)
  Receive Date: 20190503
  Receipt Date: 20190503
  Transmission Date: 20190711
  Serious: Yes (Disabling, Other)
  Sender: FDA-Public Use
  Company Number: BE-TEVA-2019-BE-1043729

PATIENT
  Age: 57 Year
  Sex: Male
  Weight: 100 kg

DRUGS (10)
  1. CISPLATIN. [Suspect]
     Active Substance: CISPLATIN
     Indication: NEOPLASM
     Dosage: 220 MILLIGRAM EVERY 3 WEEKS
     Route: 042
     Dates: start: 20181112, end: 20181203
  2. PANTOMED [Concomitant]
     Dosage: 40 MILLIGRAM PER DAY
     Route: 048
     Dates: start: 20181204
  3. DEXAMETHASONE. [Concomitant]
     Active Substance: DEXAMETHASONE
     Indication: CHEMOTHERAPY
     Dosage: 8MG PAR JOUR LES 3 JOURS QUI SUIVENT LA CHIMIO
     Route: 048
     Dates: start: 20181112, end: 20181203
  4. DEXAMETHASON ROTEXMEDICA [Concomitant]
     Indication: CHEMOTHERAPY
     Dosage: 10 MILLIGRAM EVERY 3 WEEKS
     Route: 042
     Dates: start: 20181112, end: 20181203
  5. ASAFLOW 80 MG [Concomitant]
     Dosage: 80 MILLIGRAM PER DAY
     Route: 048
  6. BISOPROLOL EG 5 MG, COMPRIM? S?CABLE [Concomitant]
     Dosage: 5 MILLIGRAM PER DAY
     Route: 048
  7. AKYNZEO [Concomitant]
     Active Substance: NETUPITANT\PALONOSETRON HYDROCHLORIDE
     Indication: PROPHYLAXIS OF NAUSEA AND VOMITING
     Dosage: 1 DF EVERY 3 WEEKS
     Route: 048
     Dates: start: 20181112, end: 20181203
  8. TRAZODONE [Concomitant]
     Active Substance: TRAZODONE HYDROCHLORIDE
     Indication: INSOMNIA
     Dosage: 50 MILLIGRAM PER DAY
     Route: 048
  9. LIPITOR 40 MG FILMOMHULDE TABLETTEN [Concomitant]
     Indication: HYPERCHOLESTEROLAEMIA
     Dosage: 40 MILLIGRAM PER DAY
     Route: 048
  10. TRADONAL ODIS [Concomitant]
     Indication: PAIN
     Dosage: 150 MILLIGRAM
     Route: 048
     Dates: start: 20181204

REACTIONS (2)
  - Tinnitus [Not Recovered/Not Resolved]
  - Hypoacusis [Not Recovered/Not Resolved]

NARRATIVE: CASE EVENT DATE: 20181126
